FAERS Safety Report 14590099 (Version 2)
Quarter: 2018Q1

REPORT INFORMATION
  Report Type: Spontaneous
  Country: US (occurrence: US)
  Receive Date: 20180302
  Receipt Date: 20180327
  Transmission Date: 20180509
  Serious: Yes (Hospitalization, Other)
  Sender: FDA-Public Use
  Company Number: US-AUROBINDO-AUR-APL-2018-010112

PATIENT
  Age: 39 Year
  Sex: Female

DRUGS (4)
  1. LORAZEPAM. [Suspect]
     Active Substance: LORAZEPAM
     Indication: BACK PAIN
     Dosage: IN TOTAL
     Route: 065
  2. OXYCODONE [Suspect]
     Active Substance: OXYCODONE
     Indication: BACK PAIN
     Dosage: DOUBLE HER PRESCRIBED DOSE ; IN TOTAL
     Route: 065
  3. ALPRAZOLAM. [Suspect]
     Active Substance: ALPRAZOLAM
     Indication: BACK PAIN
     Dosage: IN TOTAL
     Route: 065
  4. DIPHENHYDRAMINE. [Suspect]
     Active Substance: DIPHENHYDRAMINE
     Indication: BACK PAIN
     Dosage: COUPLE OF DIPHENHYDRAMINE PILLS, UNKNOWN DOSAGE ()
     Route: 065

REACTIONS (4)
  - Prescribed overdose [Recovering/Resolving]
  - Drug interaction [Unknown]
  - Loss of consciousness [Recovered/Resolved]
  - Compartment syndrome [Recovering/Resolving]
